FAERS Safety Report 4658716-8 (Version None)
Quarter: 2005Q2

REPORT INFORMATION
  Report Type: 
  Country: None (occurrence: None)
  Receive Date: 20050509
  Receipt Date: 20050425
  Transmission Date: 20051028
  Serious: Yes (Hospitalization)
  Sender: FDA-Public Use
  Company Number: 2005066163

PATIENT
  Age: 4 Year

DRUGS (3)
  1. DEPO-MEDROL [Suspect]
     Indication: ILL-DEFINED DISORDER
     Dosage: 30 MG, INTRAVENOUS
     Route: 042
     Dates: start: 20050424
  2. SALBUTAMOL (SALBUTAMOL) [Suspect]
     Indication: ASTHMA
     Dates: start: 20050424
  3. IPRATROPIUM BROMIDE [Suspect]
     Indication: ASTHMA

REACTIONS (5)
  - EXCITABILITY [None]
  - HEART RATE INCREASED [None]
  - NYSTAGMUS [None]
  - PYREXIA [None]
  - WRONG DRUG ADMINISTERED [None]
